FAERS Safety Report 23961268 (Version 3)
Quarter: 2024Q4

REPORT INFORMATION
  Report Type: Spontaneous
  Country: JP (occurrence: JP)
  Receive Date: 20240611
  Receipt Date: 20241007
  Transmission Date: 20250114
  Serious: Yes (Other)
  Sender: OTSUKA
  Company Number: JP-OTSUKA-2024_014367

PATIENT
  Age: 69 Year
  Sex: Female

DRUGS (2)
  1. REXULTI [Suspect]
     Active Substance: BREXPIPRAZOLE
     Indication: Schizophrenia
     Dosage: 1MG/DAY
     Route: 048
     Dates: start: 20240314, end: 20240414
  2. LATUDA [Suspect]
     Active Substance: LURASIDONE HYDROCHLORIDE
     Indication: Product used for unknown indication
     Dosage: 40MG/DAY
     Route: 048
     Dates: start: 20240201, end: 20240604

REACTIONS (4)
  - Sjogren^s syndrome [Unknown]
  - Diabetes mellitus [Unknown]
  - Thirst [Not Recovered/Not Resolved]
  - Treatment noncompliance [Unknown]
